FAERS Safety Report 5917795-8 (Version None)
Quarter: 2008Q4

REPORT INFORMATION
  Report Type: 
  Country: None (occurrence: None)
  Receive Date: 20081014
  Receipt Date: 20081006
  Transmission Date: 20090506
  Serious: Yes (Hospitalization)
  Sender: FDA-Public Use
  Company Number: FR-ASTRAZENECA-2008CG01451

PATIENT
  Age: 34424 Day
  Sex: Female

DRUGS (8)
  1. NEXIUM [Suspect]
     Route: 048
     Dates: end: 20080710
  2. ALDACTONE [Suspect]
     Indication: HYPERTENSION
     Route: 048
     Dates: end: 20080711
  3. COOLMETEC [Suspect]
     Indication: HYPERTENSION
     Dosage: ONE DF DAILY
     Route: 048
     Dates: end: 20080703
  4. IKOREL [Concomitant]
  5. PLAVIX [Concomitant]
  6. NITROGLYCERIN [Concomitant]
  7. MEPRONIZINE [Concomitant]
  8. HYDREA [Concomitant]

REACTIONS (2)
  - FALL [None]
  - HYPONATRAEMIA [None]
